FAERS Safety Report 8014273-X (Version None)
Quarter: 2011Q4

REPORT INFORMATION
  Report Type: 
  Country: None (occurrence: None)
  Receive Date: 20111229
  Receipt Date: 20111223
  Transmission Date: 20120403
  Serious: Yes (Hospitalization)
  Sender: FDA-Public Use
  Company Number: DE-GLAXOSMITHKLINE-B0770604A

PATIENT
  Age: 75 Year
  Sex: Male
  Weight: 63.7 kg

DRUGS (2)
  1. LAPATINIB [Suspect]
     Indication: GASTROOESOPHAGEAL CANCER
     Dosage: 1500MG PER DAY
     Route: 048
     Dates: start: 20110921, end: 20111202
  2. IBUPROFEN [Concomitant]
     Dates: start: 20111111

REACTIONS (1)
  - GENERAL PHYSICAL HEALTH DETERIORATION [None]
